FAERS Safety Report 18985930 (Version 1)
Quarter: 2021Q1

REPORT INFORMATION
  Report Type: Spontaneous
  Country: US (occurrence: US)
  Receive Date: 20210309
  Receipt Date: 20210309
  Transmission Date: 20210420
  Serious: Yes (Hospitalization)
  Sender: FDA-Public Use
  Company Number: US-MYLANLABS-2021M1013510

PATIENT
  Age: 51 Year
  Sex: Female

DRUGS (1)
  1. TESTOSTERONE. [Suspect]
     Active Substance: TESTOSTERONE
     Indication: TRANSGENDER HORMONAL THERAPY
     Dosage: LOW?DOSE
     Route: 065

REACTIONS (2)
  - Intraductal proliferative breast lesion [Recovered/Resolved]
  - Apocrine breast carcinoma [Recovered/Resolved]
